FAERS Safety Report 7005346-9 (Version None)
Quarter: 2010Q3

REPORT INFORMATION
  Report Type: 
  Country: None (occurrence: None)
  Receive Date: 20100921
  Receipt Date: 20100804
  Transmission Date: 20110219
  Serious: Yes (Hospitalization)
  Sender: FDA-Public Use
  Company Number: US-BAYER-201023623NA

PATIENT
  Age: 16 Year
  Sex: Female
  Weight: 66 kg

DRUGS (12)
  1. YAZ [Suspect]
     Indication: MENORRHAGIA
     Dosage: PFS: STARTED IN DEC-2007.
     Route: 048
     Dates: start: 20080101, end: 20080315
  2. NSAIDS [Concomitant]
     Route: 065
     Dates: start: 20010101
  3. ADVAIR DISKUS 100/50 [Concomitant]
     Route: 065
     Dates: start: 20050101
  4. CHROMAGEN [Concomitant]
     Route: 065
     Dates: start: 19970101
  5. CIPROFLOXACIN [Concomitant]
     Route: 065
     Dates: start: 19970101
  6. PROMETHAZINE [Concomitant]
     Route: 065
     Dates: start: 19970101
  7. HYDROCODONE BITARTRATE AND ACETAMINOPHEN [Concomitant]
     Route: 065
     Dates: start: 19970101
  8. HYOSCYAMINE [Concomitant]
     Route: 065
     Dates: start: 19970101
  9. PROAIR HFA [Concomitant]
     Route: 065
     Dates: start: 20000101
  10. AUGMENTIN '125' [Concomitant]
     Route: 065
     Dates: start: 20000101
  11. MIDOL [Concomitant]
     Indication: DYSMENORRHOEA
     Route: 065
  12. IBUPROFEN [Concomitant]
     Indication: PELVIC PAIN
     Dosage: USE NOT OFTEN
     Route: 065

REACTIONS (8)
  - ABDOMINAL PAIN UPPER [None]
  - BILIARY COLIC [None]
  - BILIARY DYSKINESIA [None]
  - CHOLECYSTITIS CHRONIC [None]
  - DECREASED APPETITE [None]
  - DYSPEPSIA [None]
  - HEPATOBILIARY SCAN ABNORMAL [None]
  - NAUSEA [None]
